FAERS Safety Report 7044475-0 (Version None)
Quarter: 2010Q4

REPORT INFORMATION
  Report Type: 
  Country: None (occurrence: None)
  Receive Date: 20101014
  Receipt Date: 20101001
  Transmission Date: 20110411
  Serious: Yes (Other)
  Sender: FDA-Public Use
  Company Number: US-US-EMD SERONO, INC.-7019835

PATIENT
  Sex: Female

DRUGS (1)
  1. REBIF [Suspect]
     Indication: PRODUCT USED FOR UNKNOWN INDICATION
     Route: 058
     Dates: start: 20080930

REACTIONS (5)
  - ARTHRALGIA [None]
  - BACTERIAL INFECTION [None]
  - INFLUENZA [None]
  - LETHARGY [None]
  - NASAL SEPTUM DEVIATION [None]
